FAERS Safety Report 10766298 (Version 2)
Quarter: 2015Q1

REPORT INFORMATION
  Report Type: Spontaneous
  Country: JP (occurrence: JP)
  Receive Date: 20150205
  Receipt Date: 20150218
  Transmission Date: 20150721
  Serious: Yes (Death, Other)
  Sender: FDA-Public Use
  Company Number: JP-PFIZER INC-2015045275

PATIENT
  Age: 14 Month
  Sex: Male

DRUGS (3)
  1. INTAL [Suspect]
     Active Substance: CROMOLYN SODIUM
     Dosage: UNK
     Route: 055
  2. MEPTIN [Suspect]
     Active Substance: PROCATEROL HYDROCHLORIDE
     Dosage: UNK
     Route: 055
  3. PULMICORT TURBUHALER [Suspect]
     Active Substance: BUDESONIDE
     Dosage: UNK
     Route: 055

REACTIONS (5)
  - Pneumonia [Unknown]
  - Oesophageal disorder [Unknown]
  - Product use issue [Recovered/Resolved]
  - Death [Fatal]
  - Mouth haemorrhage [Unknown]
